FAERS Safety Report 13163834 (Version 1)
Quarter: 2017Q1

REPORT INFORMATION
  Report Type: Spontaneous
  Country: US (occurrence: US)
  Receive Date: 20170130
  Receipt Date: 20170130
  Transmission Date: 20170428
  Serious: Yes (Death, Hospitalization)
  Sender: FDA-Public Use
  Company Number: US-LPDUSPRD-20170079

PATIENT
  Age: 51 Year
  Sex: Female

DRUGS (8)
  1. POSACONAZOLE [Suspect]
     Active Substance: POSACONAZOLE
     Dosage: DOSE NOT PROVIDED
     Route: 065
  2. FLUDARABINE [Suspect]
     Active Substance: FLUDARABINE PHOSPHATE
     Dosage: DOSE NOT PROVIDED
     Route: 065
  3. ANTI-THYMOCYTE GLOBULIN (RABBIT) NOS [Suspect]
     Active Substance: LAPINE T-LYMPHOCYTE IMMUNE GLOBULIN
     Dosage: DOSE NOT PROVIDED
     Route: 065
  4. CLOFARABINE [Suspect]
     Active Substance: CLOFARABINE
     Dosage: DOSE NOT PROVIDED
     Route: 065
  5. BUSULFAN INJECTION (0517-0920-01) [Suspect]
     Active Substance: BUSULFAN
     Dosage: DOSE NOT PROVIDED
     Route: 065
  6. VALACYCLOVIR [Suspect]
     Active Substance: VALACYCLOVIR HYDROCHLORIDE
     Dosage: DOSE NOT PROVIDED
     Route: 048
  7. CEFPODOXIME [Suspect]
     Active Substance: CEFPODOXIME
     Dosage: DOSE NOT PROVIDED
     Route: 065
  8. TRIMETHOPRIM-SULFAMETHOXAZOLE [Suspect]
     Active Substance: SULFAMETHOXAZOLE\TRIMETHOPRIM
     Dosage: DOSE NOT PROVIDED
     Route: 065

REACTIONS (4)
  - Acute hepatic failure [Fatal]
  - Graft versus host disease [Unknown]
  - Herpes simplex [Fatal]
  - Coagulopathy [Fatal]
